FAERS Safety Report 17257681 (Version 5)
Quarter: 2021Q4

REPORT INFORMATION
  Report Type: Report from Study
  Country: DE (occurrence: DE)
  Receive Date: 20200110
  Receipt Date: 20211123
  Transmission Date: 20220303
  Serious: Yes (Hospitalization, Other)
  Sender: FDA-Public Use
  Company Number: DE-ACCORD-156749

PATIENT
  Sex: Female
  Weight: 59 kg

DRUGS (4)
  1. PEGFILGRASTIM [Suspect]
     Active Substance: PEGFILGRASTIM
     Indication: Product used for unknown indication
     Dosage: (STRENGTH: 6 MG SECOND CYCLE)
     Route: 065
     Dates: start: 20190924, end: 20190924
  2. PEGFILGRASTIM [Suspect]
     Active Substance: PEGFILGRASTIM
     Dosage: STRENGTH: 6 MG FIRST CYCLE
     Route: 058
     Dates: start: 20190719, end: 20190719
  3. PEGFILGRASTIM [Suspect]
     Active Substance: PEGFILGRASTIM
     Dosage: STRENGTH: 6 MG SECOND CYCLE
     Route: 058
     Dates: start: 20190925
  4. CYCLOPHOSPHAMIDE [Suspect]
     Active Substance: CYCLOPHOSPHAMIDE
     Indication: Breast cancer
     Dosage: 3300 MILLIGRAM, QD
     Route: 042
     Dates: start: 20190924, end: 20190924

REACTIONS (2)
  - Neutropenia [Recovered/Resolved]
  - Drug ineffective [Unknown]

NARRATIVE: CASE EVENT DATE: 20190930
